FAERS Safety Report 21827323 (Version 3)
Quarter: 2023Q1

REPORT INFORMATION
  Report Type: Spontaneous
  Country: US (occurrence: US)
  Receive Date: 20230106
  Receipt Date: 20230320
  Transmission Date: 20230417
  Serious: Yes (Other)
  Sender: FDA-Public Use
  Company Number: US-COOPERSURGICAL, INC.-US-2022CPS000889

PATIENT
  Age: 32 Year
  Sex: Female
  Weight: 86.621 kg

DRUGS (5)
  1. PARAGARD T 380A [Suspect]
     Active Substance: COPPER
     Indication: Contraception
     Dosage: UNK
     Route: 015
     Dates: start: 201411, end: 20220302
  2. B12 1000 SR [Concomitant]
     Indication: Product used for unknown indication
     Dosage: 100 MICROGRAM
     Route: 048
  3. DOXYCYCLINE HYCLATE [Concomitant]
     Active Substance: DOXYCYCLINE HYCLATE
     Indication: Product used for unknown indication
     Dosage: 100 MILLIGRAM, BID
     Route: 048
  4. FOLATE SODIUM [Concomitant]
     Active Substance: FOLATE SODIUM
     Indication: Product used for unknown indication
     Dosage: 800 MICROGRAM
     Route: 048
  5. CLINDAMYCIN HYDROCHLORIDE [Concomitant]
     Active Substance: CLINDAMYCIN HYDROCHLORIDE
     Indication: Product used for unknown indication
     Dosage: 300 MILLIGRAM, BID
     Route: 048

REACTIONS (8)
  - Cervical dysplasia [Unknown]
  - Papilloma viral infection [Unknown]
  - Cervical cyst [Not Recovered/Not Resolved]
  - High density lipoprotein decreased [Unknown]
  - Blood urea nitrogen/creatinine ratio increased [Unknown]
  - Pelvic pain [Unknown]
  - Dyspareunia [Unknown]
  - Unintentional medical device removal [Recovered/Resolved]

NARRATIVE: CASE EVENT DATE: 20220208
